FAERS Safety Report 10238234 (Version 1)
Quarter: 2014Q2

REPORT INFORMATION
  Report Type: Report from Study
  Country: US (occurrence: US)
  Receive Date: 20140616
  Receipt Date: 20140616
  Transmission Date: 20141212
  Serious: Yes (Other)
  Sender: FDA-Public Use
  Company Number: US-JNJFOC-20140603390

PATIENT
  Sex: Female
  Weight: 113.4 kg

DRUGS (3)
  1. XARELTO [Suspect]
     Indication: DEEP VEIN THROMBOSIS
     Route: 048
     Dates: start: 20140508
  2. XARELTO [Suspect]
     Indication: DEEP VEIN THROMBOSIS
     Route: 048
     Dates: start: 201404, end: 20140507
  3. PROTONIX [Suspect]
     Indication: PRODUCT USED FOR UNKNOWN INDICATION
     Route: 065
     Dates: start: 201404, end: 201404

REACTIONS (6)
  - Deep vein thrombosis [Not Recovered/Not Resolved]
  - Diarrhoea [Recovering/Resolving]
  - Abnormal loss of weight [Not Recovered/Not Resolved]
  - Drug dispensing error [Recovered/Resolved]
  - Inappropriate schedule of drug administration [Recovered/Resolved]
  - Pruritus generalised [Recovering/Resolving]
